FAERS Safety Report 7258048-8 (Version None)
Quarter: 2011Q1

REPORT INFORMATION
  Report Type: 
  Country: None (occurrence: None)
  Receive Date: 20110129
  Receipt Date: 20100611
  Transmission Date: 20110831
  Serious: No
  Sender: FDA-Public Use
  Company Number: US-ABBOTT-10P-163-0651978-00

PATIENT
  Age: 53 Year
  Sex: Male

DRUGS (4)
  1. LISINOPRIL [Concomitant]
     Indication: HYPERTENSION
  2. BENICAR [Suspect]
     Indication: HYPERTENSION
     Dates: start: 20100601
  3. HUMIRA [Suspect]
     Indication: CROHN'S DISEASE
     Dates: start: 20090601, end: 20100504
  4. NIFEDIPINE [Concomitant]
     Indication: HYPERTENSION
     Dates: start: 20100601

REACTIONS (2)
  - RENAL IMPAIRMENT [None]
  - BLOOD PRESSURE INCREASED [None]
